FAERS Safety Report 6207796-7 (Version None)
Quarter: 2009Q2

REPORT INFORMATION
  Report Type: 
  Country: None (occurrence: None)
  Receive Date: 20090522
  Receipt Date: 20090515
  Transmission Date: 20091009
  Serious: Yes (Disabling)
  Sender: FDA-Public Use
  Company Number: GXKR2009GB05875

PATIENT
  Age: 31 Year
  Sex: Female

DRUGS (6)
  1. AMOXICILLIN [Suspect]
     Dosage: ORAL
     Route: 048
     Dates: start: 20090501
  2. PREDNISOLONE [Suspect]
     Dosage: 30 MG, ORAL
     Route: 048
     Dates: start: 20090501
  3. BECLOMETHASONE DIPROPIONATE [Concomitant]
  4. MIGRALEVE (BUCLIZINE HYDROCHLORIDE, CODEINE PHOSPHATE, PARACETAMOL) [Concomitant]
  5. OMEPRAZOLE [Concomitant]
  6. SALBUTAMOL (SALBUTAMOL) [Concomitant]

REACTIONS (2)
  - DEAFNESS [None]
  - TINNITUS [None]
